FAERS Safety Report 9526484 (Version 2)
Quarter: 2013Q3

REPORT INFORMATION
  Report Type: Spontaneous
  Country: US (occurrence: US)
  Receive Date: 20130916
  Receipt Date: 20130916
  Transmission Date: 20140515
  Serious: Yes (Other)
  Sender: FDA-Public Use
  Company Number: US-BAYER-2013-109651

PATIENT
  Age: 50 Year
  Sex: Female
  Weight: 76.19 kg

DRUGS (2)
  1. CAMPHO-PHENIQUE ANTISEPTIC COLD SORE GEL WITH DA [Suspect]
     Indication: ORAL HERPES
     Dosage: 1 APPLICATION THREE TIMES DAILY
     Route: 061
  2. CAMPHO-PHENIQUE ANTISEPTIC COLD SORE GEL WITH DA [Suspect]
     Indication: BLISTER

REACTIONS (8)
  - Application site infection [Recovering/Resolving]
  - Skin burning sensation [Not Recovered/Not Resolved]
  - Dyspnoea [Recovered/Resolved]
  - Nasal discomfort [None]
  - Scab [Not Recovered/Not Resolved]
  - Pain of skin [None]
  - Swelling [None]
  - Off label use [None]
